FAERS Safety Report 16092184 (Version 1)
Quarter: 2019Q1

REPORT INFORMATION
  Report Type: Report from Study
  Country: GB (occurrence: GB)
  Receive Date: 20190319
  Receipt Date: 20190319
  Transmission Date: 20190418
  Serious: Yes (Hospitalization)
  Sender: FDA-Public Use
  Company Number: GB-B.I. PHARMACEUTICALS,INC./RIDGEFIELD-2015-BI-47933II

PATIENT
  Age: 59 Year
  Sex: Male
  Weight: 79 kg

DRUGS (11)
  1. BIBF 1120 [Suspect]
     Active Substance: NINTEDANIB
     Indication: BLADDER CANCER
     Route: 048
     Dates: start: 20150805, end: 20151030
  2. CANDESARTAN. [Concomitant]
     Active Substance: CANDESARTAN
     Indication: HYPERTENSION
     Route: 048
     Dates: start: 20150805, end: 20151014
  3. GEMCITABINE [Suspect]
     Active Substance: GEMCITABINE\GEMCITABINE HYDROCHLORIDE
     Indication: BLADDER CANCER
     Route: 042
     Dates: start: 20150805, end: 20151014
  4. CANDESARTAN. [Concomitant]
     Active Substance: CANDESARTAN
     Route: 048
  5. SANDOK [Concomitant]
     Indication: HYPOCALCAEMIA
     Route: 048
     Dates: start: 201510, end: 201510
  6. SANDOCA [Concomitant]
     Indication: HYPOCALCAEMIA
     Route: 048
     Dates: start: 201510, end: 201510
  7. CISPLATIN. [Suspect]
     Active Substance: CISPLATIN
     Indication: BLADDER CANCER
     Route: 042
     Dates: start: 20150805, end: 20151014
  8. AMOXICILLIN. [Concomitant]
     Active Substance: AMOXICILLIN
     Indication: NEUTROPHIL COUNT
     Route: 048
     Dates: start: 201510, end: 201510
  9. OMEPRAZOLE. [Concomitant]
     Active Substance: OMEPRAZOLE
     Indication: GASTRITIS
     Route: 048
  10. OMEPRAZOLE. [Concomitant]
     Active Substance: OMEPRAZOLE
     Indication: DYSPEPSIA
  11. COCODAMOL [Concomitant]
     Active Substance: ACETAMINOPHEN\CODEINE PHOSPHATE
     Indication: PAIN
     Dosage: DOSE PER APP 30/500, DAILY DOSE: 30/500 PRN
     Route: 048

REACTIONS (2)
  - Chest pain [Recovered/Resolved]
  - Neutropenia [Recovered/Resolved]

NARRATIVE: CASE EVENT DATE: 20150806
